FAERS Safety Report 6161771-X (Version None)
Quarter: 2009Q2

REPORT INFORMATION
  Report Type: 
  Country: None (occurrence: None)
  Receive Date: 20090417
  Receipt Date: 20090417
  Transmission Date: 20091009
  Serious: Yes (Life-Threatening, Hospitalization)
  Sender: FDA-Public Use
  Company Number: None

PATIENT
  Sex: Female
  Weight: 48.0813 kg

DRUGS (1)
  1. CLINDESSE VAGINAL CREAM 2% THER-TX CORP [Suspect]
     Indication: VAGINAL INFECTION
     Dosage: 1 APPLICATION 1 DOSE VAG
     Route: 067
     Dates: start: 20080822, end: 20080822

REACTIONS (22)
  - ABDOMINAL DISTENSION [None]
  - BEDRIDDEN [None]
  - BRONCHITIS [None]
  - BURNING SENSATION [None]
  - CERVIX DISORDER [None]
  - CONSTIPATION [None]
  - DIZZINESS [None]
  - DRUG INTOLERANCE [None]
  - FATIGUE [None]
  - GASTROINTESTINAL DISORDER [None]
  - GASTROINTESTINAL PAIN [None]
  - HYPOPHAGIA [None]
  - IMPAIRED WORK ABILITY [None]
  - INFECTION [None]
  - INSOMNIA [None]
  - INTESTINAL CONGESTION [None]
  - MALAISE [None]
  - MASS [None]
  - MOVEMENT DISORDER [None]
  - PAIN [None]
  - UTERINE LEIOMYOMA [None]
  - WEIGHT DECREASED [None]
